FAERS Safety Report 20907127 (Version 2)
Quarter: 2022Q2

REPORT INFORMATION
  Report Type: Spontaneous
  Country: US (occurrence: US)
  Receive Date: 20220602
  Receipt Date: 20220606
  Transmission Date: 20220721
  Serious: No
  Sender: FDA-Public Use
  Company Number: US-PFIZER INC-202200788323

PATIENT
  Age: 65 Year
  Sex: Female

DRUGS (2)
  1. PAXLOVID [Suspect]
     Active Substance: NIRMATRELVIR\RITONAVIR
     Indication: COVID-19 treatment
     Dosage: UNK
  2. MIRTAZAPINE [Suspect]
     Active Substance: MIRTAZAPINE
     Indication: Sleep disorder
     Dosage: UNK

REACTIONS (1)
  - Weight increased [Unknown]
